FAERS Safety Report 5596073-3 (Version None)
Quarter: 2008Q1

REPORT INFORMATION
  Report Type: 
  Country: None (occurrence: None)
  Receive Date: 20080118
  Receipt Date: 20080109
  Transmission Date: 20080703
  Serious: Yes (Other)
  Sender: FDA-Public Use
  Company Number: GB-ROCHE-540574

PATIENT
  Age: 59 Year
  Sex: Female
  Weight: 120 kg

DRUGS (9)
  1. ORLISTAT [Suspect]
     Indication: OBESITY
     Route: 048
     Dates: start: 20071003, end: 20071201
  2. ANAPRIL [Concomitant]
     Indication: HYPERTENSION
     Route: 048
  3. ATENOLOL [Concomitant]
     Indication: HYPERTENSION
     Route: 048
  4. DIXARIT [Concomitant]
     Route: 048
  5. METFORMIN HCL [Concomitant]
     Route: 048
  6. MIXTARD HUMAN 70/30 [Concomitant]
     Route: 023
  7. 1 CONCOMITANT DRUG [Concomitant]
     Indication: HYPERTENSION
     Dosage: DRUG NAME: BENDROFLUOROTHIAZIDE.
     Route: 048
  8. CALCIUM CARBONATE/COLECALCIFEROL [Concomitant]
     Dosage: DRUG NAME: ADCAL D.
     Route: 048
  9. 1 CONCOMITANT DRUG [Concomitant]
     Dosage: DRUG NAME: ARINEDEX.
     Route: 048

REACTIONS (1)
  - BREAST CANCER [None]
